FAERS Safety Report 9372114 (Version 1)
Quarter: 2013Q2

REPORT INFORMATION
  Report Type: Report from Study
  Country: US (occurrence: US)
  Receive Date: 20130627
  Receipt Date: 20130627
  Transmission Date: 20140414
  Serious: Yes (Other)
  Sender: FDA-Public Use
  Company Number: US-MYLANLABS-2012S1015088

PATIENT
  Age: 50 Year
  Sex: Male

DRUGS (11)
  1. CLOZAPINE TABLETS [Suspect]
     Indication: SCHIZOPHRENIA
     Dosage: 100MG BID AND QHS
     Dates: start: 200410, end: 20130125
  2. CLOZAPINE TABLETS [Suspect]
     Indication: PSYCHOTIC DISORDER
     Dosage: 100MG BID AND QHS
     Dates: start: 200410, end: 20130125
  3. CLOZAPINE TABLETS [Suspect]
     Indication: SCHIZOPHRENIA
     Dosage: 100MG BID AND QHS
     Dates: start: 200410, end: 20130125
  4. CLOZAPINE TABLETS [Suspect]
     Indication: PSYCHOTIC DISORDER
     Dosage: 100MG BID AND QHS
     Dates: start: 200410, end: 20130125
  5. ATIVAN [Concomitant]
  6. RESTORIL [Concomitant]
  7. DEPAKOTE [Concomitant]
  8. ZOLOFT [Concomitant]
  9. AMOXAPINE [Concomitant]
  10. DESYREL [Concomitant]
  11. CHLORPROMAZINE [Concomitant]

REACTIONS (1)
  - Granulocytopenia [Not Recovered/Not Resolved]
